FAERS Safety Report 10377809 (Version 1)
Quarter: 2014Q3

REPORT INFORMATION
  Report Type: Spontaneous
  Country: US (occurrence: CA)
  Receive Date: 20140812
  Receipt Date: 20140812
  Transmission Date: 20150326
  Serious: Yes (Hospitalization)
  Sender: FDA-Public Use
  Company Number: 2014SP004627

PATIENT
  Age: 30 Year
  Sex: Female

DRUGS (8)
  1. CLINDAMYCIN [Suspect]
     Active Substance: CLINDAMYCIN\CLINDAMYCIN PHOSPHATE
     Indication: PRODUCT USED FOR UNKNOWN INDICATION
  2. PIPERACILLIN AND TAZOBACTAM [Concomitant]
     Active Substance: PIPERACILLIN SODIUM\TAZOBACTAM SODIUM
  3. METRONIDAZOLE. [Concomitant]
     Active Substance: METRONIDAZOLE
  4. VANCOMYCIN [Suspect]
     Active Substance: VANCOMYCIN
     Indication: PRODUCT USED FOR UNKNOWN INDICATION
  5. CEFAZOLIN [Concomitant]
     Active Substance: CEFAZOLIN
     Route: 030
  6. CEFALEXIN [Concomitant]
     Active Substance: CEPHALEXIN
  7. PARACETAMOL [Concomitant]
     Active Substance: ACETAMINOPHEN
  8. CEFTRIAXONE. [Concomitant]
     Active Substance: CEFTRIAXONE
     Route: 030

REACTIONS (3)
  - Red man syndrome [Recovered/Resolved]
  - Hypersensitivity [Recovered/Resolved]
  - Exposure during pregnancy [Recovered/Resolved]
